FAERS Safety Report 17472777 (Version 1)
Quarter: 2020Q1

REPORT INFORMATION
  Report Type: Spontaneous
  Country: US (occurrence: US)
  Receive Date: 20200228
  Receipt Date: 20200228
  Transmission Date: 20200409
  Serious: No
  Sender: FDA-Public Use
  Company Number: None

PATIENT
  Age: 43 Year
  Sex: Female
  Weight: 85.5 kg

DRUGS (6)
  1. FOLIC ACID. [Concomitant]
     Active Substance: FOLIC ACID
  2. IBUPROFEN. [Concomitant]
     Active Substance: IBUPROFEN
  3. TRAMADOL. [Concomitant]
     Active Substance: TRAMADOL
  4. SIMPONI ARIA [Suspect]
     Active Substance: GOLIMUMAB
     Indication: RHEUMATOID ARTHRITIS
     Dates: start: 20190701, end: 20200114
  5. LEVOTHYROXINE. [Concomitant]
     Active Substance: LEVOTHYROXINE
  6. METHOTREXATE. [Concomitant]
     Active Substance: METHOTREXATE

REACTIONS (5)
  - Psoriasis [None]
  - Palmoplantar pustulosis [None]
  - Pustular psoriasis [None]
  - Skin haemorrhage [None]
  - Infection [None]

NARRATIVE: CASE EVENT DATE: 20190902
